FAERS Safety Report 20663351 (Version 1)
Quarter: 2022Q2

REPORT INFORMATION
  Report Type: Spontaneous
  Country: US (occurrence: US)
  Receive Date: 20220401
  Receipt Date: 20220401
  Transmission Date: 20220721
  Serious: No
  Sender: FDA-Public Use
  Company Number: US-TEVA-2022-US-2024270

PATIENT
  Age: 53 Year
  Sex: Female

DRUGS (6)
  1. LISINOPRIL AND HYDROCHLOROTHIAZIDE [Suspect]
     Active Substance: HYDROCHLOROTHIAZIDE\LISINOPRIL
     Route: 065
     Dates: start: 20171116
  2. VALSARTAN [Concomitant]
     Active Substance: VALSARTAN
     Indication: Hypertension
     Dates: start: 20160311, end: 20170517
  3. VALSARTAN [Concomitant]
     Active Substance: VALSARTAN
     Dates: start: 20160809, end: 20170517
  4. VALSARTAN [Concomitant]
     Active Substance: VALSARTAN
     Indication: Hypertension
     Dates: start: 20160809, end: 20170517
  5. VALSARTAN [Concomitant]
     Active Substance: VALSARTAN
     Dates: start: 20170811, end: 20171220
  6. VALSARTAN [Concomitant]
     Active Substance: VALSARTAN
     Dates: start: 20180502, end: 20180810

REACTIONS (2)
  - Cough [Unknown]
  - Drug hypersensitivity [Unknown]

NARRATIVE: CASE EVENT DATE: 20171116
